FAERS Safety Report 9691436 (Version 1)
Quarter: 2013Q4

REPORT INFORMATION
  Report Type: Spontaneous
  Country: DK (occurrence: DK)
  Receive Date: 20131115
  Receipt Date: 20131115
  Transmission Date: 20140711
  Serious: Yes (Other)
  Sender: FDA-Public Use
  Company Number: CHPA2013DK017251

PATIENT
  Sex: Female

DRUGS (1)
  1. OTRIVIN [Suspect]
     Dosage: UNK, UNK

REACTIONS (3)
  - Drug dependence [Unknown]
  - Nasal mucosal disorder [Unknown]
  - Incorrect drug administration duration [Unknown]
